FAERS Safety Report 6035306-6 (Version None)
Quarter: 2009Q1

REPORT INFORMATION
  Report Type: 
  Country: None (occurrence: None)
  Receive Date: 20090108
  Receipt Date: 20081224
  Transmission Date: 20090719
  Serious: Yes (Other)
  Sender: FDA-Public Use
  Company Number: 6048029

PATIENT
  Age: 61 Year
  Sex: Female

DRUGS (1)
  1. CONCOR COR       (BISOPROLOL FUMARATE), 548801 [Suspect]
     Indication: DRUG USE FOR UNKNOWN INDICATION
     Dosage: 5 MG (5 MG, 1 IN 1 D)
     Dates: start: 20081122, end: 20081204

REACTIONS (2)
  - BLOOD PRESSURE INCREASED [None]
  - DRUG INEFFECTIVE [None]
